FAERS Safety Report 25753352 (Version 1)
Quarter: 2025Q3

REPORT INFORMATION
  Report Type: Report from Study
  Country: US (occurrence: US)
  Receive Date: 20250903
  Receipt Date: 20250903
  Transmission Date: 20251021
  Serious: Yes (Other)
  Sender: JOHNSON AND JOHNSON
  Company Number: US-JNJFOC-20250829823

PATIENT

DRUGS (1)
  1. TECVAYLI [Suspect]
     Active Substance: TECLISTAMAB-CQYV
     Indication: Plasma cell myeloma

REACTIONS (4)
  - Neutropenia [Unknown]
  - Immune effector cell-associated neurotoxicity syndrome [Unknown]
  - Plasma cell myeloma [Unknown]
  - Intentional product use issue [Unknown]
